FAERS Safety Report 26069921 (Version 1)
Quarter: 2025Q4

REPORT INFORMATION
  Report Type: Spontaneous
  Country: US (occurrence: None)
  Receive Date: 20251119
  Receipt Date: 20251119
  Transmission Date: 20260117
  Serious: Yes (Other)
  Sender: FDA-CTU
  Company Number: None

PATIENT
  Age: 16 Year
  Sex: Male
  Weight: 69.3 kg

DRUGS (5)
  1. ALYFTREK [Suspect]
     Active Substance: DEUTIVACAFTOR\TEZACAFTOR\VANZACAFTOR
     Indication: Cystic fibrosis
     Dates: start: 20250916, end: 20251117
  2. Albuterol 0.083% Inhalation Solution [Concomitant]
  3. CONCERTA [Concomitant]
     Active Substance: METHYLPHENIDATE HYDROCHLORIDE
  4. Creon 24,000 units lipase [Concomitant]
  5. URSODIOL [Concomitant]
     Active Substance: URSODIOL

REACTIONS (4)
  - Headache [None]
  - Abdominal discomfort [None]
  - Abdominal pain upper [None]
  - Nausea [None]

NARRATIVE: CASE EVENT DATE: 20251118
